FAERS Safety Report 20865568 (Version 6)
Quarter: 2022Q3

REPORT INFORMATION
  Report Type: Spontaneous
  Country: US (occurrence: US)
  Receive Date: 20220524
  Receipt Date: 20220921
  Transmission Date: 20221027
  Serious: Yes (Hospitalization, Other)
  Sender: FDA-Public Use
  Company Number: US-BIOVITRUM-2022US05296

PATIENT
  Sex: Female

DRUGS (1)
  1. KINERET [Suspect]
     Active Substance: ANAKINRA
     Indication: Rheumatoid arthritis
     Dates: start: 20210326

REACTIONS (28)
  - Epistaxis [Recovering/Resolving]
  - Pain [Recovering/Resolving]
  - Sinusitis [Recovering/Resolving]
  - Cellulitis [Unknown]
  - Cardiac failure congestive [Unknown]
  - Hip fracture [Unknown]
  - Dehydration [Unknown]
  - Swelling [Unknown]
  - Adverse drug reaction [Unknown]
  - Pain in extremity [Unknown]
  - Upper respiratory tract infection [Unknown]
  - Peripheral swelling [Unknown]
  - Epistaxis [Unknown]
  - Fungal infection [Unknown]
  - Sinus disorder [Unknown]
  - Myalgia [Unknown]
  - Abscess [Unknown]
  - Contusion [Unknown]
  - Pyrexia [Unknown]
  - Night sweats [Unknown]
  - Immune system disorder [Unknown]
  - Blister [Unknown]
  - Appetite disorder [Unknown]
  - Abdominal discomfort [Unknown]
  - Illness [Unknown]
  - Pruritus [Unknown]
  - Drug hypersensitivity [Unknown]
  - Product dose omission issue [Not Recovered/Not Resolved]
